FAERS Safety Report 6066607 (Version 2)
Quarter: 2013Q1

REPORT INFORMATION
  Report Type: Spontaneous
  Country: US (occurrence: US)
  Receive Date: 20060616
  Receipt Date: 20130321
  Transmission Date: 20140127
  Serious: Yes (Other)
  Sender: FDA-Public Use
  Company Number: US-JNJFOC-20060601826

PATIENT
  Age: 34 Year
  Sex: Female
  Weight: 76.8 kg

DRUGS (8)
  1. IBUPROFEN [Suspect]
     Indication: PAIN
  2. IBUPROFEN [Suspect]
     Indication: PAIN
     Dosage: AS NEEDED BASIS
  3. TRAMADOL HYDROCHLORIDE [Concomitant]
     Indication: PAIN
     Dates: start: 2003
  4. ACETAMINOPHEN [Concomitant]
     Indication: PAIN
  5. BUTALBITAL/ACETAMINOPHEN/CAFFEINE [Concomitant]
     Indication: PAIN
  6. SUMATRIPTAN SUCCINATE [Concomitant]
     Indication: PAIN
     Dosage: AVERAGE OF 10 TABLETS PER MONTH
     Dates: start: 2002
  7. OXYCODONE [Concomitant]
     Indication: PAIN
  8. PERCOCET [Concomitant]
     Indication: PAIN

REACTIONS (2)
  - Nephrotic syndrome [Recovered/Resolved]
  - Incorrect drug administration duration [Recovered/Resolved]
